FAERS Safety Report 18308940 (Version 1)
Quarter: 2020Q3

REPORT INFORMATION
  Report Type: Spontaneous
  Country: CA (occurrence: CA)
  Receive Date: 20200925
  Receipt Date: 20200925
  Transmission Date: 20201103
  Serious: Yes (Other)
  Sender: FDA-Public Use
  Company Number: CA-JNJFOC-20200933899

PATIENT
  Sex: Female

DRUGS (3)
  1. TYLENOL [Interacting]
     Active Substance: ACETAMINOPHEN
     Indication: HEADACHE
  2. TYLENOL [Suspect]
     Active Substance: ACETAMINOPHEN
     Indication: VISUAL IMPAIRMENT
     Route: 065
  3. PMS?LAMOTRIGINE [Interacting]
     Active Substance: LAMOTRIGINE
     Indication: EPILEPSY
     Route: 065

REACTIONS (4)
  - Headache [Not Recovered/Not Resolved]
  - Therapeutic product effect decreased [Not Recovered/Not Resolved]
  - Visual impairment [Not Recovered/Not Resolved]
  - Drug interaction [Not Recovered/Not Resolved]
